FAERS Safety Report 19980322 (Version 2)
Quarter: 2021Q4

REPORT INFORMATION
  Report Type: Spontaneous
  Country: US (occurrence: US)
  Receive Date: 20211021
  Receipt Date: 20211108
  Transmission Date: 20220304
  Serious: Yes (Other)
  Sender: FDA-Public Use
  Company Number: US-009507513-2110USA004545

PATIENT
  Sex: Male

DRUGS (1)
  1. BRIDION [Suspect]
     Active Substance: SUGAMMADEX
     Indication: Neuromuscular blockade reversal
     Dosage: 2 MILLILITER, ONCE
     Dates: start: 202106

REACTIONS (5)
  - Vasospasm [Unknown]
  - Circulatory collapse [Unknown]
  - Electrocardiogram ST segment elevation [Unknown]
  - End-tidal CO2 decreased [Unknown]
  - Chest pain [Unknown]

NARRATIVE: CASE EVENT DATE: 20210601
